FAERS Safety Report 6135632-6 (Version None)
Quarter: 2009Q1

REPORT INFORMATION
  Report Type: 
  Country: None (occurrence: None)
  Receive Date: 20090327
  Receipt Date: 20081121
  Transmission Date: 20090719
  Serious: Yes (Other)
  Sender: FDA-Public Use
  Company Number: US-ASTRAZENECA-2008AP09522

PATIENT
  Sex: Female

DRUGS (4)
  1. ZESTRIL [Suspect]
     Route: 048
  2. ZESTRIL [Suspect]
     Route: 048
  3. COUMADIN [Concomitant]
  4. ZYRTEC [Concomitant]

REACTIONS (2)
  - FATIGUE [None]
  - PRESYNCOPE [None]
